FAERS Safety Report 4810959-6 (Version None)
Quarter: 2005Q4

REPORT INFORMATION
  Report Type: 
  Country: None (occurrence: None)
  Receive Date: 20051025
  Receipt Date: 20051013
  Transmission Date: 20060501
  Serious: Yes (Hospitalization)
  Sender: FDA-Public Use
  Company Number: HP200500099

PATIENT
  Age: 42 Year
  Sex: Female
  Weight: 76.2 kg

DRUGS (2)
  1. EMBELINE [Suspect]
     Indication: SKIN DISORDER
     Dosage: BID, TOPICAL
     Route: 061
     Dates: start: 20050901, end: 20051011
  2. PRENATAL VITAMINS (ASCORBIC ACID, VITAMIN D NOS, VITAMIN B NOS, TOCOPH [Concomitant]

REACTIONS (10)
  - BONE PAIN [None]
  - EAR DISORDER [None]
  - HEADACHE [None]
  - INFLAMMATION [None]
  - MUSCLE SPASMS [None]
  - MYALGIA [None]
  - ORAL DISCOMFORT [None]
  - PRURITUS GENERALISED [None]
  - VOMITING [None]
  - WHEEZING [None]
